FAERS Safety Report 11221548 (Version 9)
Quarter: 2017Q1

REPORT INFORMATION
  Report Type: Report from Study
  Country: US (occurrence: US)
  Receive Date: 20150626
  Receipt Date: 20170127
  Transmission Date: 20170428
  Serious: Yes (Hospitalization, Congenital Anomaly, Other)
  Sender: FDA-Public Use
  Company Number: US-ROCHE-1554372

PATIENT
  Sex: Male
  Weight: 2.27 kg

DRUGS (7)
  1. DPT [Concomitant]
     Active Substance: DIPHTHERIA AND TETANUS TOXOIDS AND PERTUSSIS VACCINE
  2. MMR [Concomitant]
     Active Substance: MEASLES-MUMPS-RUBELLA VIRUS VACCINE
  3. VARICELLA VACCINE [Concomitant]
     Active Substance: VARICELLA-ZOSTER VIRUS STRAIN OKA/MERCK LIVE ANTIGEN
  4. OMALIZUMAB [Suspect]
     Active Substance: OMALIZUMAB
     Indication: PRODUCT USED FOR UNKNOWN INDICATION
     Route: 064
  5. HAEMOPHILUS INFLUENZAE [Concomitant]
     Active Substance: HAEMOPHILUS INFLUENZAE TYPE B
  6. OMALIZUMAB [Suspect]
     Active Substance: OMALIZUMAB
     Route: 063
  7. PNEUMOCOCCAL VACCINE POLYVALENT NOS [Concomitant]
     Active Substance: PNEUMOCOCCAL VACCINE POLYVALENT

REACTIONS (14)
  - Talipes [Not Recovered/Not Resolved]
  - Feeding disorder [Unknown]
  - Foetal exposure during pregnancy [Unknown]
  - Penile adhesion [Unknown]
  - Faecaloma [Recovered/Resolved]
  - Diarrhoea [Unknown]
  - Neonatal respiratory distress syndrome [Recovered/Resolved]
  - Constipation [Unknown]
  - Exposure during breast feeding [Unknown]
  - Dermatitis diaper [Unknown]
  - Foetal growth restriction [Unknown]
  - Cough [Unknown]
  - Jaundice neonatal [Recovered/Resolved]
  - Urinary retention [Unknown]

NARRATIVE: CASE EVENT DATE: 20150515
